FAERS Safety Report 23432779 (Version 1)
Quarter: 2024Q1

REPORT INFORMATION
  Report Type: Spontaneous
  Country: US (occurrence: US)
  Receive Date: 20240123
  Receipt Date: 20240123
  Transmission Date: 20240410
  Serious: No
  Sender: FDA-Public Use
  Company Number: US-Eisai-EC-2024-157442

PATIENT
  Sex: Male

DRUGS (1)
  1. RUFINAMIDE [Suspect]
     Active Substance: RUFINAMIDE
     Indication: Product used for unknown indication
     Route: 048

REACTIONS (2)
  - Generalised tonic-clonic seizure [Unknown]
  - Drug withdrawal convulsions [Unknown]
